FAERS Safety Report 8377276-1 (Version None)
Quarter: 2012Q2

REPORT INFORMATION
  Report Type: 
  Country: None (occurrence: None)
  Receive Date: 20120522
  Receipt Date: 20120516
  Transmission Date: 20120825
  Serious: Yes (Other)
  Sender: FDA-Public Use
  Company Number: US-PFIZER INC-2012119706

PATIENT
  Sex: Female
  Weight: 68.027 kg

DRUGS (2)
  1. CELEBREX [Suspect]
     Indication: SPINAL COLUMN STENOSIS
  2. CELEBREX [Suspect]
     Indication: INTERVERTEBRAL DISC DEGENERATION
     Dosage: 200 MG, DAILY
     Dates: start: 20080101

REACTIONS (4)
  - LOWER LIMB FRACTURE [None]
  - TENDON DISORDER [None]
  - NERVE COMPRESSION [None]
  - TIBIA FRACTURE [None]
